FAERS Safety Report 7796180-0 (Version None)
Quarter: 2011Q4

REPORT INFORMATION
  Report Type: 
  Country: None (occurrence: None)
  Receive Date: 20111004
  Receipt Date: 20090518
  Transmission Date: 20120403
  Serious: Yes (Other)
  Sender: FDA-Public Use
  Company Number: GB-AMGEN-GBRSP2009000287

PATIENT
  Sex: Female

DRUGS (2)
  1. ARANESP [Suspect]
     Dosage: UNK
     Route: 064
  2. ARANESP [Suspect]
     Dosage: UNK
     Route: 064

REACTIONS (1)
  - PREMATURE BABY [None]
